FAERS Safety Report 4363086-9 (Version None)
Quarter: 2004Q2

REPORT INFORMATION
  Report Type: 
  Country: None (occurrence: None)
  Receive Date: 20040519
  Receipt Date: 20040506
  Transmission Date: 20050107
  Serious: Yes (Other)
  Sender: FDA-Public Use
  Company Number: 2004031647

PATIENT
  Sex: Female

DRUGS (1)
  1. REACTINE ALLERGY AND SINUS (CITIRIZINE, PSEUDOEPHEDRINE) [Suspect]
     Indication: ILL-DEFINED DISORDER
     Dosage: ORAL
     Route: 048

REACTIONS (2)
  - RASH MORBILLIFORM [None]
  - RASH PRURITIC [None]
